FAERS Safety Report 14203215 (Version 1)
Quarter: 2017Q4

REPORT INFORMATION
  Report Type: Spontaneous
  Country: US (occurrence: US)
  Receive Date: 20171120
  Receipt Date: 20171120
  Transmission Date: 20180321
  Serious: Yes (Other)
  Sender: FDA-Public Use
  Company Number: US-ROCHE-2022260

PATIENT
  Age: 6 Year
  Sex: Male

DRUGS (1)
  1. TOCILIZUMAB. [Suspect]
     Active Substance: TOCILIZUMAB
     Indication: PRODUCT USED FOR UNKNOWN INDICATION
     Route: 065

REACTIONS (8)
  - Interstitial lung disease [Unknown]
  - Clubbing [Unknown]
  - Cough [Unknown]
  - Pneumonia [Unknown]
  - Neutropenia [Unknown]
  - Respiratory distress [Unknown]
  - Vulval abscess [Unknown]
  - Pyrexia [Unknown]
